FAERS Safety Report 25509149 (Version 2)
Quarter: 2025Q4

REPORT INFORMATION
  Report Type: Report from Study
  Country: US (occurrence: US)
  Receive Date: 20250703
  Receipt Date: 20251115
  Transmission Date: 20260117
  Serious: Yes (Hospitalization, Other)
  Sender: ABBVIE
  Company Number: US-ABBVIE-6353328

PATIENT
  Sex: Female

DRUGS (2)
  1. SKYRIZI [Suspect]
     Active Substance: RISANKIZUMAB-RZAA
     Indication: Psoriasis
     Route: 058
     Dates: start: 20220103
  2. SKYRIZI [Suspect]
     Active Substance: RISANKIZUMAB-RZAA
     Route: 058
     Dates: start: 20211227

REACTIONS (5)
  - Cerebral haemorrhage [Unknown]
  - Skin cancer [Not Recovered/Not Resolved]
  - Brain neoplasm [Recovering/Resolving]
  - Fall [Recovering/Resolving]
  - Cerebral cyst haemorrhage [Not Recovered/Not Resolved]
